FAERS Safety Report 13121944 (Version 1)
Quarter: 2017Q1

REPORT INFORMATION
  Report Type: Spontaneous
  Country: US (occurrence: US)
  Receive Date: 20170117
  Receipt Date: 20170117
  Transmission Date: 20170428
  Serious: Yes (Other)
  Sender: FDA-Public Use
  Company Number: US-BAYER-2017-008861

PATIENT
  Age: 70 Year
  Sex: Male
  Weight: 88 kg

DRUGS (4)
  1. BAYER ASPIRIN [Suspect]
     Active Substance: ASPIRIN
     Indication: PROPHYLAXIS
     Dosage: UNK
     Route: 048
     Dates: end: 20170116
  2. DULCOLAX PICOSULFAT [Concomitant]
  3. OMEPRAZOL [Concomitant]
     Active Substance: OMEPRAZOLE
  4. METOPROLOL. [Concomitant]
     Active Substance: METOPROLOL

REACTIONS (4)
  - Myocardial infarction [Recovered/Resolved]
  - Product use issue [Unknown]
  - Therapeutic response unexpected [Unknown]
  - Product use issue [Unknown]

NARRATIVE: CASE EVENT DATE: 201609
